FAERS Safety Report 11359635 (Version 1)
Quarter: 2015Q3

REPORT INFORMATION
  Report Type: Spontaneous
  Country: US (occurrence: US)
  Receive Date: 20150807
  Receipt Date: 20150807
  Transmission Date: 20151125
  Serious: No
  Sender: FDA-Public Use
  Company Number: US-009507513-1507USA009746

PATIENT
  Age: 22 Year
  Sex: Female
  Weight: 81.63 kg

DRUGS (1)
  1. NEXPLANON [Suspect]
     Active Substance: ETONOGESTREL
     Indication: CONTRACEPTION
     Dosage: EVERY 3 YEARS, LEFT ARM
     Route: 059
     Dates: start: 20150218

REACTIONS (3)
  - Menstruation irregular [Unknown]
  - Implant site pain [Unknown]
  - Hypomenorrhoea [Unknown]

NARRATIVE: CASE EVENT DATE: 2015
